FAERS Safety Report 23207346 (Version 1)
Quarter: 2023Q4

REPORT INFORMATION
  Report Type: Spontaneous
  Country: US (occurrence: US)
  Receive Date: 20231120
  Receipt Date: 20231120
  Transmission Date: 20240110
  Serious: Yes (Death, Life-Threatening, Hospitalization, Other)
  Sender: FDA-Public Use
  Company Number: US-BRACCO-2023US01171

PATIENT
  Age: 61 Year
  Sex: Male

DRUGS (14)
  1. LUMASON [Suspect]
     Active Substance: SULFUR HEXAFLUORIDE
     Indication: Echocardiogram
     Dosage: 1 ML, SINGLE
     Route: 042
     Dates: start: 20230313, end: 20230313
  2. LUMASON [Suspect]
     Active Substance: SULFUR HEXAFLUORIDE
     Indication: Echocardiogram
     Dosage: 1 ML, SINGLE
     Route: 042
     Dates: start: 20230313, end: 20230313
  3. LUMASON [Suspect]
     Active Substance: SULFUR HEXAFLUORIDE
     Indication: Echocardiogram
     Dosage: 1 ML, SINGLE
     Route: 042
     Dates: start: 20230313, end: 20230313
  4. ENTRESTO [Concomitant]
     Active Substance: SACUBITRIL\VALSARTAN
  5. COREG [Concomitant]
     Active Substance: CARVEDILOL
  6. DIGOXIN [Concomitant]
     Active Substance: DIGOXIN
  7. CHANTIX [Concomitant]
     Active Substance: VARENICLINE TARTRATE
  8. EMPAGLIFLOZIN [Concomitant]
     Active Substance: EMPAGLIFLOZIN
  9. INSULIN ASPART [Concomitant]
     Active Substance: INSULIN ASPART
  10. NOVOLOG [Concomitant]
     Active Substance: INSULIN ASPART
  11. LASIX [Concomitant]
     Active Substance: FUROSEMIDE
  12. CRESTOR [Concomitant]
     Active Substance: ROSUVASTATIN CALCIUM
  13. ASPIRIN [Concomitant]
     Active Substance: ASPIRIN
  14. ZOLOFT [Concomitant]
     Active Substance: SERTRALINE HYDROCHLORIDE

REACTIONS (1)
  - Anaphylactic reaction [Fatal]

NARRATIVE: CASE EVENT DATE: 20230313
